FAERS Safety Report 11094911 (Version 2)
Quarter: 2015Q2

REPORT INFORMATION
  Report Type: Spontaneous
  Country: BR (occurrence: BR)
  Receive Date: 20150506
  Receipt Date: 20150609
  Transmission Date: 20150821
  Serious: Yes (Other)
  Sender: FDA-Public Use
  Company Number: BR-PFIZER INC-2015140533

PATIENT
  Age: 84 Year
  Sex: Female
  Weight: 70 kg

DRUGS (3)
  1. ATENOL [Concomitant]
     Active Substance: ATENOLOL
     Dosage: 100 MG, DAILY (ONE TABLET PER DAY)
  2. APRESOLINE HYDROCHLORIDE [Concomitant]
     Active Substance: HYDRALAZINE HYDROCHLORIDE
     Indication: BLOOD PRESSURE ABNORMAL
     Dosage: 50 MG, 3X/DAY (ONE TABLET EVERY EIGHT HOURS)
  3. LIPITOR [Suspect]
     Active Substance: ATORVASTATIN CALCIUM
     Dosage: 10 MG, 1X/DAY (STRENGTH: 10 MG / AT DINNER)
     Route: 048

REACTIONS (1)
  - Fall [Unknown]

NARRATIVE: CASE EVENT DATE: 201503
